FAERS Safety Report 20590130 (Version 2)
Quarter: 2022Q1

REPORT INFORMATION
  Report Type: Spontaneous
  Country: US (occurrence: US)
  Receive Date: 20220314
  Receipt Date: 20220322
  Transmission Date: 20220423
  Serious: No
  Sender: FDA-Public Use
  Company Number: US-LUPIN PHARMACEUTICALS INC.-2022-03110

PATIENT
  Sex: Female

DRUGS (5)
  1. CEFDINIR [Suspect]
     Active Substance: CEFDINIR
     Indication: Sinusitis
     Dosage: 300 MILLIGRAM
     Route: 065
     Dates: start: 2021, end: 202112
  2. CEFDINIR [Suspect]
     Active Substance: CEFDINIR
     Indication: Gingivitis
  3. CEFDINIR [Suspect]
     Active Substance: CEFDINIR
     Indication: Sinusitis
     Dosage: UNK
     Route: 065
     Dates: start: 2021, end: 202112
  4. CEFDINIR [Suspect]
     Active Substance: CEFDINIR
     Indication: Gingivitis
  5. CLONAZEPAM [Concomitant]
     Active Substance: CLONAZEPAM
     Indication: Neuralgia
     Dosage: UNK
     Route: 065

REACTIONS (4)
  - Diarrhoea [Unknown]
  - Rash [Unknown]
  - Rash macular [Unknown]
  - Product substitution issue [Unknown]

NARRATIVE: CASE EVENT DATE: 20210101
